FAERS Safety Report 7239336-8 (Version None)
Quarter: 2011Q1

REPORT INFORMATION
  Report Type: 
  Country: None (occurrence: None)
  Receive Date: 20110121
  Receipt Date: 20110114
  Transmission Date: 20110831
  Serious: Yes (Hospitalization, Other)
  Sender: FDA-Public Use
  Company Number: JP-PFIZER INC-2010148451

PATIENT
  Age: 77 Year
  Sex: Female
  Weight: 50 kg

DRUGS (8)
  1. LYRICA [Suspect]
     Indication: SCIATICA
     Dosage: 150 MG, 2X/DAY
     Route: 048
     Dates: start: 20101028, end: 20101029
  2. WARFARIN [Concomitant]
     Indication: ATRIAL FIBRILLATION
     Dosage: 3.75 MG, 1X/DAY
     Route: 048
     Dates: start: 20080101
  3. CONIEL [Concomitant]
     Indication: HYPERTENSION
     Dosage: 8 MG, 2X/DAY
     Route: 048
     Dates: start: 20061001
  4. THYRADIN S [Concomitant]
     Indication: HYPOTHYROIDISM
     Dosage: 125 UG, 1X/DAY
     Route: 048
     Dates: start: 20011001
  5. LOSARTAN POTASSIUM AND HYDROCHLOROTHIAZIDE [Concomitant]
     Indication: HYPERTENSION
     Dosage: UNK
     Route: 048
     Dates: start: 20070101
  6. AMISALIN [Concomitant]
     Indication: SUPRAVENTRICULAR TACHYCARDIA
     Dosage: 500 MG, 2X/DAY
     Route: 048
     Dates: start: 20060601, end: 20101101
  7. CONIEL [Concomitant]
     Indication: ANGINA PECTORIS
  8. METFORMIN HCL [Concomitant]
     Indication: DIABETES MELLITUS
     Dosage: 500 MG, 2X/DAY
     Route: 048
     Dates: start: 20001101

REACTIONS (1)
  - ATRIAL FIBRILLATION [None]
